FAERS Safety Report 4746631-0 (Version None)
Quarter: 2005Q3

REPORT INFORMATION
  Report Type: 
  Country: None (occurrence: None)
  Receive Date: 20050817
  Receipt Date: 20041203
  Transmission Date: 20060218
  Serious: Yes (Other)
  Sender: FDA-Public Use
  Company Number: IE-SOLVAY-00205002621

PATIENT
  Age: 29628 Day
  Sex: Female
  Weight: 69 kg

DRUGS (6)
  1. FUROSEMIDE [Concomitant]
     Indication: ILL-DEFINED DISORDER
     Dosage: DAILY DOSE:  UNKNOWN
     Route: 048
  2. BLINDED THERAPY (PERINDOPRIL VS PLACEBO) [Suspect]
     Indication: CARDIAC FAILURE CONGESTIVE
     Dosage: DAILY DOSE: 1 DOSAGE FORM
     Route: 048
     Dates: start: 20020520, end: 20020524
  3. BLINDED THERAPY (PERINDOPRIL VS PLACEBO) [Suspect]
     Dosage: DAILY DOSE: 1 DOSAGE FORM
     Route: 048
     Dates: start: 20020828, end: 20020830
  4. ASPIRIN [Concomitant]
     Indication: ILL-DEFINED DISORDER
     Dosage: DAILY DOSE:  UNKNOWN
     Route: 065
  5. NICARDIPINE HCL [Concomitant]
     Indication: ILL-DEFINED DISORDER
     Dosage: DAILY DOSE:  UNKNOWN
     Route: 065
     Dates: start: 20020620
  6. GTN [Concomitant]
     Indication: ILL-DEFINED DISORDER
     Dosage: DAILY DOSE:  UNKNOWN
     Route: 065

REACTIONS (9)
  - ABASIA [None]
  - ASTHENIA [None]
  - CHEST PAIN [None]
  - DYSPNOEA EXACERBATED [None]
  - FALL [None]
  - NECK PAIN [None]
  - PAIN IN EXTREMITY [None]
  - SENSATION OF HEAVINESS [None]
  - SHOULDER PAIN [None]
